FAERS Safety Report 4280196-5 (Version None)
Quarter: 2004Q1

REPORT INFORMATION
  Report Type: 
  Country: None (occurrence: None)
  Receive Date: 20040128
  Receipt Date: 20040117
  Transmission Date: 20041129
  Serious: Yes (Other)
  Sender: FDA-Public Use
  Company Number: GB-GLAXOSMITHKLINE-B0320170A

PATIENT
  Age: 68 Year
  Sex: Male
  Weight: 87.6 kg

DRUGS (5)
  1. DUTASTERIDE [Suspect]
     Indication: PROSTATISM
     Route: 048
     Dates: start: 20030714, end: 20030901
  2. ASPIRIN [Concomitant]
     Route: 065
     Dates: start: 20010914
  3. TAMSULOSIN HYDROCHLORIDE [Concomitant]
     Route: 065
     Dates: start: 20030714
  4. PREDNISOLONE [Concomitant]
     Route: 065
     Dates: end: 20030815
  5. AQUEOUS CREAM BP [Concomitant]
     Route: 065
     Dates: start: 20030903

REACTIONS (1)
  - LOCALISED SKIN REACTION [None]
